FAERS Safety Report 21005653 (Version 1)
Quarter: 2022Q2

REPORT INFORMATION
  Report Type: Spontaneous
  Country: FR (occurrence: FR)
  Receive Date: 20220624
  Receipt Date: 20220624
  Transmission Date: 20220720
  Serious: Yes (Death, Life-Threatening, Hospitalization, Other)
  Sender: FDA-Public Use
  Company Number: FR-PFIZER INC-2020402022

PATIENT
  Age: 40 Year
  Sex: Female
  Weight: 78.088 kg

DRUGS (10)
  1. PACLITAXEL [Suspect]
     Active Substance: PACLITAXEL
     Indication: Breast cancer metastatic
     Dosage: 90 MG/M2, CYCLIC
     Route: 042
     Dates: end: 20200803
  2. PACLITAXEL [Suspect]
     Active Substance: PACLITAXEL
     Dosage: 170 MG 1 TOTAL
     Route: 041
     Dates: start: 20200803
  3. PACLITAXEL [Suspect]
     Active Substance: PACLITAXEL
     Dosage: UNK
     Route: 065
     Dates: start: 202003, end: 2020
  4. PACLITAXEL [Suspect]
     Active Substance: PACLITAXEL
     Dosage: 90 MG/M2, CYCLIC (ON DAY1, DAY8, DAY15 EVERY)
     Route: 042
     Dates: start: 202003
  5. PACLITAXEL [Suspect]
     Active Substance: PACLITAXEL
     Route: 065
     Dates: start: 202003, end: 2022
  6. PACLITAXEL [Suspect]
     Active Substance: PACLITAXEL
     Dosage: 170 MG 1 TOTAL
     Route: 041
     Dates: start: 20200803
  7. PACLITAXEL [Suspect]
     Active Substance: PACLITAXEL
     Route: 042
     Dates: start: 20200424, end: 20200803
  8. ENANTONE LP [Suspect]
     Active Substance: LEUPROLIDE ACETATE
     Indication: Breast cancer metastatic
     Dosage: UNK
     Route: 065
     Dates: start: 201808, end: 202002
  9. PALBOCICLIB [Suspect]
     Active Substance: PALBOCICLIB
     Indication: Breast cancer metastatic
     Dosage: UNK
     Route: 065
     Dates: start: 201808, end: 202002
  10. FEMARA [Suspect]
     Active Substance: LETROZOLE
     Indication: Breast cancer metastatic
     Dosage: UNK
     Route: 065
     Dates: start: 201808, end: 202002

REACTIONS (16)
  - Malignant neoplasm progression [Fatal]
  - Metastases to liver [Fatal]
  - Cell death [Fatal]
  - Hepatic cytolysis [Fatal]
  - Hepatitis fulminant [Fatal]
  - Anaemia [Fatal]
  - Hepatitis acute [Fatal]
  - Hepatomegaly [Fatal]
  - Portal hypertension [Fatal]
  - Blood urea increased [Fatal]
  - Acute kidney injury [Fatal]
  - C-reactive protein increased [Fatal]
  - Generalised oedema [Fatal]
  - Hepatic failure [Fatal]
  - Neutrophil count increased [Fatal]
  - Hepatocellular injury [Fatal]

NARRATIVE: CASE EVENT DATE: 20200101
